FAERS Safety Report 6116963-2 (Version None)
Quarter: 2009Q1

REPORT INFORMATION
  Report Type: 
  Country: None (occurrence: None)
  Receive Date: 20090314
  Receipt Date: 20081230
  Transmission Date: 20090719
  Serious: No
  Sender: FDA-Public Use
  Company Number: US-ABBOTT-08P-163-0495322-00

PATIENT
  Sex: Male
  Weight: 89.438 kg

DRUGS (2)
  1. HUMIRA [Suspect]
     Indication: PSORIATIC ARTHROPATHY
     Dosage: HUMIRA PRE-FILLED SYRINGE
     Route: 058
     Dates: start: 20081001
  2. HUMIRA [Suspect]
     Dosage: HUMIRA PEN
     Route: 058
     Dates: start: 20081001

REACTIONS (1)
  - INJECTION SITE PAIN [None]
